FAERS Safety Report 4817342-8 (Version None)
Quarter: 2005Q4

REPORT INFORMATION
  Report Type: 
  Country: None (occurrence: None)
  Receive Date: 20051101
  Receipt Date: 20051025
  Transmission Date: 20060501
  Serious: Yes (Hospitalization)
  Sender: FDA-Public Use
  Company Number: US-BRISTOL-MYERS SQUIBB COMPANY-13159033

PATIENT
  Age: 55 Year
  Sex: Male

DRUGS (12)
  1. CETUXIMAB [Suspect]
     Indication: NON-SMALL CELL LUNG CANCER
     Route: 042
     Dates: start: 20050906, end: 20050906
  2. CARBOPLATIN [Suspect]
     Indication: NON-SMALL CELL LUNG CANCER
     Route: 042
     Dates: start: 20050913, end: 20050913
  3. PACLITAXEL [Suspect]
     Indication: NON-SMALL CELL LUNG CANCER
     Route: 042
     Dates: start: 20050913, end: 20050913
  4. PERCOCET [Concomitant]
     Indication: PAIN
     Route: 048
  5. MS CONTIN [Concomitant]
     Route: 048
  6. ALLOPURINOL [Concomitant]
     Route: 048
  7. METFORMIN HCL [Concomitant]
     Route: 048
  8. INDOMETHACIN [Concomitant]
     Route: 048
  9. NOVOLOG [Concomitant]
     Route: 058
  10. ZANTAC [Concomitant]
     Route: 048
  11. CLINDAMYCIN [Concomitant]
     Route: 061
  12. MAG-OX [Concomitant]
     Route: 048

REACTIONS (4)
  - DEHYDRATION [None]
  - DIARRHOEA [None]
  - NAUSEA [None]
  - VOMITING [None]
